FAERS Safety Report 20224651 (Version 1)
Quarter: 2021Q4

REPORT INFORMATION
  Report Type: Report from Study
  Country: PL (occurrence: PL)
  Receive Date: 20211223
  Receipt Date: 20211223
  Transmission Date: 20220303
  Serious: Yes (Hospitalization)
  Sender: FDA-Public Use
  Company Number: PL-TEVA-2021-PL-1990447

PATIENT
  Age: 39 Year
  Sex: Male

DRUGS (7)
  1. VINCRISTINE [Suspect]
     Active Substance: VINCRISTINE
     Indication: Acute lymphocytic leukaemia
     Dosage: FOR 4 WEEKS
     Route: 065
  2. PREDNISONE [Suspect]
     Active Substance: PREDNISONE
     Indication: Acute lymphocytic leukaemia
     Dosage: 1 MG PER KG BODY WEIGHT
     Route: 065
  3. DAUNORUBICIN [Suspect]
     Active Substance: DAUNORUBICIN
     Indication: Acute lymphocytic leukaemia
     Dosage: FOR WEEK 3
     Route: 065
  4. DAUNORUBICIN [Suspect]
     Active Substance: DAUNORUBICIN
     Dosage: FOR WEEK 4
     Route: 065
  5. IMATINIB [Suspect]
     Active Substance: IMATINIB
     Indication: Acute lymphocytic leukaemia
     Route: 065
  6. IMATINIB [Suspect]
     Active Substance: IMATINIB
     Dosage: CONTINUOUSLY
     Route: 065
  7. IMATINIB [Suspect]
     Active Substance: IMATINIB
     Route: 037

REACTIONS (2)
  - Cytopenia [Unknown]
  - Drug ineffective [Unknown]
